FAERS Safety Report 25779741 (Version 1)
Quarter: 2025Q3

REPORT INFORMATION
  Report Type: Spontaneous
  Country: GB (occurrence: GB)
  Receive Date: 20250909
  Receipt Date: 20250909
  Transmission Date: 20251021
  Serious: Yes (Other)
  Sender: MYLAN
  Company Number: GB-MHRA-TPP4833395C9253398YC1756212835966

PATIENT
  Age: 66 Year
  Sex: Male
  Weight: 73 kg

DRUGS (12)
  1. LATANOPROST [Suspect]
     Active Substance: LATANOPROST
     Indication: Ill-defined disorder
  2. LATANOPROST [Suspect]
     Active Substance: LATANOPROST
     Route: 065
  3. LATANOPROST [Suspect]
     Active Substance: LATANOPROST
     Route: 065
  4. LATANOPROST [Suspect]
     Active Substance: LATANOPROST
  5. DORZOLAMIDE [Concomitant]
     Active Substance: DORZOLAMIDE
     Indication: Ill-defined disorder
     Dosage: 1 GTT DROPS, BID (ONE DROP TWICE A DAY AS DIRECTED)
     Dates: start: 20250515, end: 20250701
  6. DORZOLAMIDE [Concomitant]
     Active Substance: DORZOLAMIDE
     Dosage: 1 GTT DROPS, BID (ONE DROP TWICE A DAY AS DIRECTED)
     Route: 065
     Dates: start: 20250515, end: 20250701
  7. DORZOLAMIDE [Concomitant]
     Active Substance: DORZOLAMIDE
     Dosage: 1 GTT DROPS, BID (ONE DROP TWICE A DAY AS DIRECTED)
     Route: 065
     Dates: start: 20250515, end: 20250701
  8. DORZOLAMIDE [Concomitant]
     Active Substance: DORZOLAMIDE
     Dosage: 1 GTT DROPS, BID (ONE DROP TWICE A DAY AS DIRECTED)
     Dates: start: 20250515, end: 20250701
  9. BRINZOLAMIDE [Concomitant]
     Active Substance: BRINZOLAMIDE
     Indication: Ill-defined disorder
     Dosage: 2 GTT DROPS BID (ONE DROP TWICE DAILY IN BOTH EYES)
     Dates: start: 20250701, end: 20250826
  10. BRINZOLAMIDE [Concomitant]
     Active Substance: BRINZOLAMIDE
     Dosage: 2 GTT DROPS BID (ONE DROP TWICE DAILY IN BOTH EYES)
     Route: 065
     Dates: start: 20250701, end: 20250826
  11. BRINZOLAMIDE [Concomitant]
     Active Substance: BRINZOLAMIDE
     Dosage: 2 GTT DROPS BID (ONE DROP TWICE DAILY IN BOTH EYES)
     Route: 065
     Dates: start: 20250701, end: 20250826
  12. BRINZOLAMIDE [Concomitant]
     Active Substance: BRINZOLAMIDE
     Dosage: 2 GTT DROPS BID (ONE DROP TWICE DAILY IN BOTH EYES)
     Dates: start: 20250701, end: 20250826

REACTIONS (1)
  - Swelling face [Recovered/Resolved]

NARRATIVE: CASE EVENT DATE: 20250806
